FAERS Safety Report 6284478-7 (Version None)
Quarter: 2009Q3

REPORT INFORMATION
  Report Type: 
  Country: None (occurrence: None)
  Receive Date: 20090723
  Receipt Date: 20090721
  Transmission Date: 20100115
  Serious: Yes (Hospitalization)
  Sender: FDA-Public Use
  Company Number: WWISSUE-314

PATIENT
  Age: 58 Year
  Sex: Female

DRUGS (2)
  1. PREDNISONE [Suspect]
     Indication: PLATELET COUNT DECREASED
     Dosage: 60 MG/DAY/ORAL
     Route: 048
     Dates: start: 20090614, end: 20090709
  2. ESTRADIOL FOR HORMONE REPLACEMENT [Concomitant]

REACTIONS (3)
  - ALOPECIA [None]
  - MENTAL DISORDER [None]
  - OEDEMA PERIPHERAL [None]
